FAERS Safety Report 6571613-6 (Version None)
Quarter: 2010Q1

REPORT INFORMATION
  Report Type: 
  Country: None (occurrence: None)
  Receive Date: 20100205
  Receipt Date: 20100128
  Transmission Date: 20100710
  Serious: Yes (Hospitalization)
  Sender: FDA-Public Use
  Company Number: BR-ELI_LILLY_AND_COMPANY-BR201001005998

PATIENT
  Sex: Female

DRUGS (10)
  1. HUMALOG MIX 75/25 [Suspect]
     Indication: DIABETES MELLITUS
     Dosage: 46 IU, EACH MORNING
     Route: 058
     Dates: start: 20080507
  2. HUMALOG MIX 75/25 [Suspect]
     Dosage: 20 IU, EACH EVENING
     Route: 058
     Dates: start: 20080507
  3. GALVUS [Concomitant]
     Indication: DIABETES MELLITUS
     Dosage: 50 MG, 2/D
     Route: 065
  4. GLIFAGE [Concomitant]
     Indication: DIABETES MELLITUS
     Dosage: UNK, DAILY (1/D)
     Route: 065
  5. AAS [Concomitant]
     Dosage: 100 MG, DAILY (1/D)
     Route: 065
  6. FUROSEMIDE [Concomitant]
     Indication: BLOOD PRESSURE
     Dosage: 40 MG, DAILY (1/D)
     Route: 065
  7. ESPIRONOLACTONA [Concomitant]
     Indication: URINARY TRACT DISORDER
     Dosage: UNK, DAILY (1/D)
     Route: 065
  8. LYRICA [Concomitant]
     Indication: NEUROPATHY PERIPHERAL
     Dosage: 75 MG, DAILY (1/D)
     Route: 065
  9. IRON SULFATETHIAMIN COMPOUND TAB [Concomitant]
     Indication: ANAEMIA
     Dosage: 250 MG, 2/D
     Route: 065
  10. DRAMIN B-6 [Concomitant]
     Indication: NAUSEA
     Dosage: UNK, 3/D
     Route: 065

REACTIONS (3)
  - BLOOD GLUCOSE INCREASED [None]
  - DIABETES MELLITUS INADEQUATE CONTROL [None]
  - NEUROPATHY PERIPHERAL [None]
